FAERS Safety Report 5144106-0 (Version None)
Quarter: 2006Q4

REPORT INFORMATION
  Report Type: 
  Country: None (occurrence: None)
  Receive Date: 20061106
  Receipt Date: 20061023
  Transmission Date: 20070319
  Serious: Yes (Other)
  Sender: FDA-Public Use
  Company Number: PHBS2006US16499

PATIENT
  Age: 58 Year
  Sex: Male

DRUGS (2)
  1. CYCLOSPORINE [Suspect]
     Indication: RENAL TRANSPLANT
     Dosage: 75 MG, BID
     Route: 065
     Dates: start: 19890601, end: 20050201
  2. CYCLOSPORINE [Suspect]
     Dosage: 50 MG, BID
     Route: 065
     Dates: start: 20050201

REACTIONS (6)
  - BLOOD URIC ACID INCREASED [None]
  - CATARACT [None]
  - EPSTEIN-BARR VIRUS ANTIBODY NEGATIVE [None]
  - EPSTEIN-BARR VIRUS ANTIBODY POSITIVE [None]
  - NON-HODGKIN'S LYMPHOMA [None]
  - SPLENOMEGALY [None]
